FAERS Safety Report 6621287-0 (Version None)
Quarter: 2010Q1

REPORT INFORMATION
  Report Type: 
  Country: None (occurrence: None)
  Receive Date: 20100309
  Receipt Date: 20100225
  Transmission Date: 20100710
  Serious: Yes (Life-Threatening, Other)
  Sender: FDA-Public Use
  Company Number: NL-BAYER-201017850GPV

PATIENT
  Age: 75 Year
  Sex: Male

DRUGS (8)
  1. SOTALOL [Suspect]
     Indication: DRUG USE FOR UNKNOWN INDICATION
  2. FUROSEMIDE [Suspect]
     Indication: DRUG USE FOR UNKNOWN INDICATION
  3. AMLODIPINE [Suspect]
     Indication: DRUG USE FOR UNKNOWN INDICATION
  4. DIGOXIN [Suspect]
     Indication: DRUG USE FOR UNKNOWN INDICATION
  5. ISOSORBIDE MONONITRATE [Suspect]
     Indication: DRUG USE FOR UNKNOWN INDICATION
  6. ACENOCOUMAROL [Suspect]
     Indication: DRUG USE FOR UNKNOWN INDICATION
  7. ATORVASTATIN CALCIUM [Suspect]
     Indication: DRUG USE FOR UNKNOWN INDICATION
  8. PERINDOPRIL [Suspect]
     Indication: DRUG USE FOR UNKNOWN INDICATION

REACTIONS (5)
  - CARDIOGENIC SHOCK [None]
  - DISORIENTATION [None]
  - HYPOTENSION [None]
  - RENAL FAILURE [None]
  - VENTRICULAR ARRHYTHMIA [None]
